FAERS Safety Report 5728060-6 (Version None)
Quarter: 2008Q2

REPORT INFORMATION
  Report Type: 
  Country: None (occurrence: None)
  Receive Date: 20080505
  Receipt Date: 20080423
  Transmission Date: 20081010
  Serious: Yes (Life-Threatening, Hospitalization, Other)
  Sender: FDA-Public Use
  Company Number: US-PFIZER INC-2008036589

PATIENT
  Age: 73 Year
  Sex: Male

DRUGS (4)
  1. SPIRONOLACTONE [Suspect]
     Indication: CARDIAC FAILURE CONGESTIVE
     Dosage: DAILY DOSE:8MG-FREQ:FREQUENCY: 1 IN 1 D
     Dates: start: 20060514, end: 20070329
  2. K-TAB [Suspect]
     Indication: MINERAL SUPPLEMENTATION
     Dosage: DAILY DOSE:80MCG-FREQ:QD
     Route: 048
     Dates: start: 20070307, end: 20070329
  3. BUMETANIDE [Concomitant]
  4. LISINOPRIL [Concomitant]

REACTIONS (6)
  - ATRIAL FIBRILLATION [None]
  - ATRIOVENTRICULAR BLOCK COMPLETE [None]
  - BRADYCARDIA [None]
  - DYSPNOEA [None]
  - HYPERKALAEMIA [None]
  - MEAN ARTERIAL PRESSURE DECREASED [None]
